FAERS Safety Report 7774290-1 (Version None)
Quarter: 2011Q3

REPORT INFORMATION
  Report Type: 
  Country: None (occurrence: None)
  Receive Date: 20110923
  Receipt Date: 20110920
  Transmission Date: 20111222
  Serious: Yes (Death, Hospitalization, Other)
  Sender: FDA-Public Use
  Company Number: US-PFIZER INC-2011169703

PATIENT
  Sex: Male

DRUGS (1)
  1. SUTENT [Suspect]
     Indication: RENAL CANCER METASTATIC
     Dosage: 50 MG, 1X/DAY
     Route: 048
     Dates: start: 20110628, end: 20110725

REACTIONS (6)
  - DEHYDRATION [None]
  - RENAL CANCER METASTATIC [None]
  - RENAL FAILURE ACUTE [None]
  - HYPERCALCAEMIA [None]
  - DISEASE PROGRESSION [None]
  - BLOOD CREATININE INCREASED [None]
